FAERS Safety Report 4837587-0 (Version None)
Quarter: 2005Q4

REPORT INFORMATION
  Report Type: 
  Country: None (occurrence: None)
  Receive Date: 20051024
  Receipt Date: 20050811
  Transmission Date: 20060501
  Serious: No
  Sender: FDA-Public Use
  Company Number: 216840

PATIENT
  Age: 29 Year
  Sex: Female

DRUGS (5)
  1. XOLAIR [Suspect]
     Indication: ASTHMA
     Dosage: 300 MG, Q4W, UNK
     Dates: start: 20050804
  2. ADVIAR (SALMETEROL XINAFOATE, FLUTICASONE PROPIONATE) [Concomitant]
  3. THEOPHYLLINE [Concomitant]
  4. INTAL [Concomitant]
  5. XOPENEX [Concomitant]

REACTIONS (2)
  - PARAESTHESIA [None]
  - VOCAL CORD DISORDER [None]
